FAERS Safety Report 4719387-5 (Version None)
Quarter: 2005Q3

REPORT INFORMATION
  Report Type: 
  Country: None (occurrence: None)
  Receive Date: 20050718
  Receipt Date: 20050224
  Transmission Date: 20060218
  Serious: No
  Sender: FDA-Public Use
  Company Number: 2005000448

PATIENT
  Age: 75 Year
  Sex: Female

DRUGS (9)
  1. TARCEVA [Suspect]
     Indication: NON-SMALL CELL LUNG CANCER
     Dosage: 150 MG (QD), ORAL
     Route: 048
     Dates: start: 20050212, end: 20050213
  2. COMPAZINE [Concomitant]
  3. OXYCONTIN (OXYCODONE HYDROCHORIDE) [Concomitant]
  4. COUMADIN [Concomitant]
  5. B-12 (CYANOCOBALAMIN) [Concomitant]
  6. FOLIC ACID [Concomitant]
  7. ALBUTEROL [Concomitant]
  8. XANAX [Concomitant]
  9. ZOLOFT [Concomitant]

REACTIONS (4)
  - DYSPNOEA [None]
  - FEELING COLD [None]
  - HEADACHE [None]
  - TREMOR [None]
